FAERS Safety Report 5169354-5 (Version None)
Quarter: 2006Q4

REPORT INFORMATION
  Report Type: 
  Country: None (occurrence: None)
  Receive Date: 20061211
  Receipt Date: 20061127
  Transmission Date: 20070319
  Serious: Yes (Other)
  Sender: FDA-Public Use
  Company Number: GR-ELI_LILLY_AND_COMPANY-GR200611004671

PATIENT
  Age: 39 Year
  Sex: Male

DRUGS (3)
  1. LADOSE [Suspect]
     Indication: DEPRESSION
     Dosage: UNK, UNK
     Route: 048
     Dates: start: 20060401
  2. IRON [Concomitant]
     Indication: SUPPLEMENTATION THERAPY
     Dosage: OTHER, (OCCASIONALLY)
  3. VITAMIN B-12 [Concomitant]
     Dosage: ONCE A MONTH
     Route: 042
     Dates: start: 20051101, end: 20061101

REACTIONS (1)
  - COUGH [None]
